FAERS Safety Report 5507345-2 (Version None)
Quarter: 2007Q4

REPORT INFORMATION
  Report Type: 
  Country: None (occurrence: None)
  Receive Date: 20071102
  Receipt Date: 20071018
  Transmission Date: 20080405
  Serious: Yes (Other)
  Sender: FDA-Public Use
  Company Number: 163063ISR

PATIENT
  Age: 68 Year
  Sex: Female

DRUGS (5)
  1. FLUOROURACIL [Suspect]
     Indication: CHEMOTHERAPY
  2. OLMESARTAN MEDOXOMIL [Suspect]
  3. LEVETIRACETAM [Suspect]
  4. LAMOTRIGINE [Suspect]
  5. SODIUM FOLINATE [Suspect]

REACTIONS (3)
  - CONDITION AGGRAVATED [None]
  - DRUG INTERACTION [None]
  - EPILEPSY [None]
